FAERS Safety Report 21605649 (Version 1)
Quarter: 2022Q4

REPORT INFORMATION
  Report Type: Spontaneous
  Country: US (occurrence: US)
  Receive Date: 20221116
  Receipt Date: 20221116
  Transmission Date: 20230113
  Serious: Yes (Hospitalization)
  Sender: FDA-Public Use
  Company Number: US-STRIDES ARCOLAB LIMITED-2022SP015379

PATIENT
  Age: 14 Year
  Sex: Male
  Weight: 47.1 kg

DRUGS (7)
  1. LETROZOLE [Interacting]
     Active Substance: LETROZOLE
     Indication: Growth hormone deficiency
     Dosage: UNK
     Route: 065
  2. LETROZOLE [Interacting]
     Active Substance: LETROZOLE
     Dosage: UNK (RE-INITIATION)
     Route: 065
  3. SOMATROPIN [Interacting]
     Active Substance: SOMATROPIN
     Indication: Growth hormone deficiency
     Dosage: UNK
     Route: 065
  4. SOMATROPIN [Interacting]
     Active Substance: SOMATROPIN
     Dosage: UNK (RE-INITIATION)
     Route: 065
  5. DEXMETHYLPHENIDATE [Interacting]
     Active Substance: DEXMETHYLPHENIDATE
     Indication: Attention deficit hyperactivity disorder
     Dosage: UNK
     Route: 065
  6. DEXMETHYLPHENIDATE [Interacting]
     Active Substance: DEXMETHYLPHENIDATE
     Dosage: UNK (EXTENDED RELEASE) (RESTARTED)
     Route: 065
  7. DEXMETHYLPHENIDATE [Interacting]
     Active Substance: DEXMETHYLPHENIDATE
     Dosage: UNK (RE-INITIATION)
     Route: 065

REACTIONS (3)
  - Rhabdomyolysis [Recovered/Resolved]
  - Drug interaction [Unknown]
  - Off label use [Unknown]
